FAERS Safety Report 5150455-2 (Version None)
Quarter: 2006Q4

REPORT INFORMATION
  Report Type: 
  Country: None (occurrence: None)
  Receive Date: 20061108
  Receipt Date: 20061026
  Transmission Date: 20070319
  Serious: Yes (Disabling)
  Sender: FDA-Public Use
  Company Number: CAWYE344626OCT06

PATIENT
  Age: 45 Year
  Sex: Female

DRUGS (3)
  1. EFFEXOR XR [Suspect]
     Indication: ANXIETY
     Dosage: 37.5 MG 1X PER 1 DAY, ORAL
     Route: 048
     Dates: start: 20061023, end: 20061024
  2. ALPRAZOLAM [Concomitant]
  3. ORAL CONTRACEPTIVE NOS. [Concomitant]

REACTIONS (4)
  - CEREBRAL PALSY [None]
  - CONDITION AGGRAVATED [None]
  - INSOMNIA [None]
  - NERVOUSNESS [None]
